FAERS Safety Report 7502406-0 (Version None)
Quarter: 2011Q2

REPORT INFORMATION
  Report Type: 
  Country: None (occurrence: None)
  Receive Date: 20110523
  Receipt Date: 20110523
  Transmission Date: 20111010
  Serious: Yes (Other)
  Sender: FDA-Public Use
  Company Number: None

PATIENT
  Sex: Male
  Weight: 95.2554 kg

DRUGS (4)
  1. CRESTOR [Suspect]
     Indication: BLOOD CHOLESTEROL
     Dates: start: 20090501
  2. LISINOPRIL [Suspect]
     Indication: BLOOD PRESSURE
     Dates: start: 20100201
  3. GLIMEPERIDE 2MG 3X [Suspect]
  4. GEMFIBROZIL [Suspect]

REACTIONS (3)
  - DYSPNOEA [None]
  - HYPOPNOEA [None]
  - TACHYPNOEA [None]
